FAERS Safety Report 10022831 (Version 1)
Quarter: 2014Q1

REPORT INFORMATION
  Report Type: Report from Study
  Country: US (occurrence: US)
  Receive Date: 20140319
  Receipt Date: 20140319
  Transmission Date: 20141002
  Serious: Yes (Death)
  Sender: FDA-Public Use
  Company Number: US-ACTELION-A-US2014-96299

PATIENT
  Age: 37 Year
  Sex: Female

DRUGS (1)
  1. VELETRI [Suspect]
     Indication: COR PULMONALE CHRONIC
     Dosage: 19.5 NG/KG, PER MIN
     Route: 042
     Dates: start: 20111223, end: 20140217

REACTIONS (1)
  - Respiratory arrest [Fatal]
